FAERS Safety Report 9379947 (Version 1)
Quarter: 2013Q3

REPORT INFORMATION
  Report Type: Spontaneous
  Country: JP (occurrence: JP)
  Receive Date: 20130702
  Receipt Date: 20130702
  Transmission Date: 20140515
  Serious: Yes (Other)
  Sender: FDA-Public Use
  Company Number: PHHY2013JP066305

PATIENT
  Age: 5 Year
  Sex: Female

DRUGS (4)
  1. CICLOSPORIN [Suspect]
     Indication: NEPHROTIC SYNDROME
  2. PREDNISOLONE [Suspect]
     Indication: NEPHROTIC SYNDROME
     Dosage: 60 MG/M2,
  3. CYCLOPHOSPHAMIDE [Suspect]
     Indication: NEPHROTIC SYNDROME
  4. MIZORIBINE [Suspect]
     Indication: NEPHROTIC SYNDROME
     Dosage: 300 MG, PER DAY

REACTIONS (6)
  - Drug dependence [Unknown]
  - Nephrotic syndrome [Recovered/Resolved]
  - Disease recurrence [Recovered/Resolved]
  - Focal segmental glomerulosclerosis [Unknown]
  - Nephropathy toxic [Unknown]
  - Toxicity to various agents [Unknown]
